FAERS Safety Report 25771406 (Version 1)
Quarter: 2025Q3

REPORT INFORMATION
  Report Type: Spontaneous
  Country: GB (occurrence: GB)
  Receive Date: 20250908
  Receipt Date: 20250908
  Transmission Date: 20251021
  Serious: Yes (Other)
  Sender: SAMSUNG BIOEPIS
  Company Number: None

PATIENT

DRUGS (1)
  1. PYZCHIVA [Suspect]
     Active Substance: USTEKINUMAB-TTWE
     Indication: Product used for unknown indication

REACTIONS (4)
  - Inflammatory bowel disease [Unknown]
  - Fatigue [Unknown]
  - Headache [Unknown]
  - Frequent bowel movements [Unknown]
